FAERS Safety Report 5918955-2 (Version None)
Quarter: 2008Q3

REPORT INFORMATION
  Report Type: 
  Country: None (occurrence: None)
  Receive Date: 20080909
  Receipt Date: 20070807
  Transmission Date: 20090109
  Serious: Yes (Other)
  Sender: FDA-Public Use
  Company Number: 163-20785-07061517

PATIENT
  Age: 81 Year
  Sex: Female
  Weight: 47.7 kg

DRUGS (10)
  1. THALOMID [Suspect]
     Indication: MULTIPLE MYELOMA
     Dosage: 200 MG, QHSX 28 DAYS, ORAL ; 100 MG, 1 IN 1 D, ORAL
     Route: 048
     Dates: start: 20050714, end: 20050801
  2. THALOMID [Suspect]
     Indication: MULTIPLE MYELOMA
     Dosage: 200 MG, QHSX 28 DAYS, ORAL ; 100 MG, 1 IN 1 D, ORAL
     Route: 048
     Dates: start: 20050810, end: 20070720
  3. DEXAMETHASONE TAB [Concomitant]
  4. MULTIVITAMIN (MULTIVITAMIN) [Concomitant]
  5. VITAMIN B12 [Concomitant]
  6. NORVASC [Concomitant]
  7. FOLIC ACID [Concomitant]
  8. VITAMIN B6 [Concomitant]
  9. PROTONIX [Concomitant]
  10. ENALAPRIL MALEATE [Concomitant]

REACTIONS (4)
  - BLOOD COUNT ABNORMAL [None]
  - HYPOAESTHESIA [None]
  - NEUROPATHY PERIPHERAL [None]
  - PARAESTHESIA [None]
